FAERS Safety Report 7980780-9 (Version None)
Quarter: 2011Q4

REPORT INFORMATION
  Report Type: 
  Country: None (occurrence: None)
  Receive Date: 20111214
  Receipt Date: 20111205
  Transmission Date: 20120403
  Serious: Yes (Hospitalization, Other)
  Sender: FDA-Public Use
  Company Number: US-RB-035141-11

PATIENT
  Age: 61 Year
  Sex: Male

DRUGS (9)
  1. ALPRAZOLAM [Concomitant]
     Dosage: UNKNOWN DOSING REGIMEN
     Route: 065
  2. AMBIEN [Concomitant]
     Indication: SLEEP DISORDER
     Dosage: UNKNOWN DOSING REGIMEN
     Route: 065
  3. SUBOXONE [Suspect]
     Dosage: 1/4 MG TWICE DAILY
     Route: 060
     Dates: start: 20110101
  4. SUBOXONE [Suspect]
     Dosage: 8 MG TWICE A DAY
     Route: 060
  5. SUBOXONE [Suspect]
     Dosage: 2 MG DAILY THEN SELF TAPERED
     Route: 060
     Dates: start: 20110101, end: 20110101
  6. SUBOXONE [Suspect]
     Indication: DRUG DEPENDENCE
     Dosage: 8 MG THREE TIMES A DAY
     Route: 060
     Dates: start: 20100101
  7. SUBOXONE [Suspect]
     Dosage: 8 MG DAILY
     Route: 060
     Dates: end: 20110101
  8. SUBOXONE [Suspect]
     Dosage: 6 MG DAILY
     Route: 060
     Dates: start: 20110101, end: 20110101
  9. ALPRAZOLAM [Concomitant]
     Indication: ANXIETY
     Dosage: UNKNOWN DOSING REGIMEN
     Route: 065

REACTIONS (3)
  - UNDERDOSE [None]
  - WRONG TECHNIQUE IN DRUG USAGE PROCESS [None]
  - INTESTINAL OBSTRUCTION [None]
